FAERS Safety Report 20128648 (Version 1)
Quarter: 2021Q4

REPORT INFORMATION
  Report Type: Spontaneous
  Country: DE (occurrence: DE)
  Receive Date: 20211130
  Receipt Date: 20211130
  Transmission Date: 20220303
  Serious: Yes (Death, Life-Threatening, Other)
  Sender: FDA-Public Use
  Company Number: DE-AMGEN-DEUSP2021187234

PATIENT

DRUGS (9)
  1. CARFILZOMIB [Suspect]
     Active Substance: CARFILZOMIB
     Indication: Plasma cell myeloma refractory
     Dosage: 16 MILLIGRAM/KILOGRAM, ON DAYS 1, 8 AS
     Route: 042
  2. DARATUMUMAB [Suspect]
     Active Substance: DARATUMUMAB
     Indication: Plasma cell myeloma
     Route: 042
  3. THALIDOMIDE [Suspect]
     Active Substance: THALIDOMIDE
     Indication: Plasma cell myeloma
     Dosage: 100 MILLIGRAM
     Route: 048
  4. CISPLATIN [Suspect]
     Active Substance: CISPLATIN
     Indication: Plasma cell myeloma
     Dosage: 10 MILLIGRAM/SQ. METER
     Route: 042
  5. DOXORUBICIN [Suspect]
     Active Substance: DOXORUBICIN
     Indication: Plasma cell myeloma
     Dosage: 10 MILLIGRAM/SQ. METER
     Route: 042
  6. CYCLOPHOSPHAMIDE [Suspect]
     Active Substance: CYCLOPHOSPHAMIDE
     Indication: Plasma cell myeloma
     Dosage: 400 MILLIGRAM/SQ. METER
     Route: 042
  7. ETOPOSIDE [Suspect]
     Active Substance: ETOPOSIDE
     Indication: Plasma cell myeloma
     Dosage: 40 MILLIGRAM/SQ. METER
     Route: 042
  8. DEXAMETHASONE [Suspect]
     Active Substance: DEXAMETHASONE
  9. LENALIDOMIDE [Suspect]
     Active Substance: LENALIDOMIDE

REACTIONS (24)
  - Cardiac failure acute [Unknown]
  - Renal failure [Unknown]
  - Leukopenia [Unknown]
  - Neutropenia [Unknown]
  - Thrombocytopenia [Unknown]
  - Pneumonia [Unknown]
  - Febrile neutropenia [Fatal]
  - Haemorrhage intracranial [Unknown]
  - Plasma cell myeloma [Unknown]
  - Seizure [Unknown]
  - Anaemia [Unknown]
  - Tumour lysis syndrome [Unknown]
  - Oesophageal infection [Unknown]
  - Device related infection [Unknown]
  - Syncope [Unknown]
  - Mucosal inflammation [Unknown]
  - Extradural abscess [Unknown]
  - Intervertebral discitis [Unknown]
  - Polyneuropathy [Unknown]
  - Oral herpes [Unknown]
  - Therapy non-responder [Unknown]
  - Influenza [Unknown]
  - Urinary tract infection [Unknown]
  - Diarrhoea [Unknown]
